FAERS Safety Report 17453736 (Version 2)
Quarter: 2020Q1

REPORT INFORMATION
  Report Type: Report from Study
  Country: US (occurrence: US)
  Receive Date: 20200224
  Receipt Date: 20200312
  Transmission Date: 20200409
  Serious: Yes (Hospitalization)
  Sender: FDA-Public Use
  Company Number: US-ADAMAS PHARMA, LLC-2020ADA00388

PATIENT
  Age: 73 Year
  Sex: Male
  Weight: 72.56 kg

DRUGS (10)
  1. CARBIDOPA/LEVODOPA [Concomitant]
     Active Substance: CARBIDOPA\LEVODOPA
     Dosage: 1 TABLETS, 4X/DAY AS NEEDED
  2. GOCOVRI [Suspect]
     Active Substance: AMANTADINE
     Indication: DYSKINESIA
     Dosage: 274 MG, 1X/DAY AT NIGHT
     Route: 048
     Dates: start: 20180221, end: 202001
  3. VITAMIN B1 [Concomitant]
     Active Substance: THIAMINE HYDROCHLORIDE
  4. GOCOVRI [Suspect]
     Active Substance: AMANTADINE
     Dosage: 137 MG, 1X/DAY AT NIGHT
     Dates: start: 202001, end: 20200202
  5. DEEP BRAIN STIMULATION [Concomitant]
  6. CARBIDOPA/LEVODOPA [Concomitant]
     Active Substance: CARBIDOPA\LEVODOPA
     Dosage: 2 TABLETS, 1X/DAY IN THE MORNING
  7. CORTISONE ACETATE. [Concomitant]
     Active Substance: CORTISONE ACETATE
  8. VITAMIN B12 [Concomitant]
     Active Substance: CYANOCOBALAMIN
  9. GOCOVRI [Suspect]
     Active Substance: AMANTADINE
     Dosage: 137 MG, 1X/DAY AT NIGHT
     Dates: start: 202002
  10. CITALOPRAM [Concomitant]
     Active Substance: CITALOPRAM HYDROBROMIDE
     Dosage: 1.5 TABLETS, 1X/DAY

REACTIONS (3)
  - Faecaloma [Recovering/Resolving]
  - Fall [Recovered/Resolved]
  - Hyperammonaemia [Unknown]

NARRATIVE: CASE EVENT DATE: 2019
